FAERS Safety Report 8342409 (Version 6)
Quarter: 2012Q4

REPORT INFORMATION
  Report Type: Report from Study
  Country: JP (occurrence: JP)
  Receive Date: 20120118
  Receipt Date: 20121228
  Transmission Date: 20130627
  Serious: Yes (Hospitalization, Disabling)
  Sender: FDA-Public Use
  Company Number: JP-NAPPMUNDI-MAG-2012-0002007

PATIENT
  Age: 69 Year
  Sex: Male
  Weight: 63.45 kg

DRUGS (37)
  1. OXYCODONE HCL [Suspect]
     Indication: PAIN
     Dosage: 50 mg, bid
     Route: 048
     Dates: start: 20110617
  2. OXYCODONE HCL [Suspect]
     Dosage: 40 mg, bid
     Route: 048
     Dates: start: 20110507, end: 20110616
  3. OXYCODONE HCL [Suspect]
     Dosage: 30 mg, bid
     Route: 048
     Dates: start: 20110304, end: 20110506
  4. OXYCODONE HCL [Suspect]
     Dosage: 20 mg, bid
     Route: 048
     Dates: start: 20101218, end: 20110304
  5. OXYCODONE HYDROCHLORIDE [Suspect]
     Indication: PAIN
     Dosage: 50 mg, bid
     Route: 048
     Dates: start: 20110617
  6. OXYCODONE HYDROCHLORIDE [Suspect]
     Dosage: 40 mg, bid
     Route: 048
     Dates: start: 20110507, end: 20110616
  7. OXYCODONE HYDROCHLORIDE [Suspect]
     Dosage: 30 mg, bid
     Route: 048
     Dates: start: 20110304, end: 20110506
  8. OXYCODONE HYDROCHLORIDE [Suspect]
     Dosage: 20 mg, bid
     Route: 048
     Dates: start: 20101218, end: 20110304
  9. OXYCODONE HYDROCHLORIDE [Suspect]
     Dosage: 20 mg, bid
     Route: 048
     Dates: start: 20101103, end: 20101217
  10. AXITINIB [Suspect]
     Indication: METASTATIC RENAL CELL CARCINOMA
     Dosage: 5 mg, bid
     Route: 048
     Dates: start: 20110827, end: 20110926
  11. AXITINIB [Suspect]
     Dosage: 5 mg, bid
     Route: 048
     Dates: start: 20110729, end: 20110818
  12. AXITINIB [Suspect]
     Dosage: 5 mg, bid
     Route: 048
     Dates: start: 20101116, end: 20110714
  13. AXITINIB [Suspect]
     Dosage: 2 mg, bid
     Route: 048
     Dates: start: 20101214, end: 20110714
  14. DECADRON                           /00016001/ [Suspect]
     Indication: PYREXIA
     Dosage: 2 mg, daily
     Route: 048
     Dates: start: 20111029
  15. DECADRON                           /00016001/ [Suspect]
     Dosage: 1 mg, daily
     Route: 048
     Dates: start: 20111014, end: 20111028
  16. DECADRON                           /00016001/ [Suspect]
     Dosage: 0.5 mg, daily
     Route: 048
     Dates: start: 20110825, end: 20111013
  17. DECADRON                           /00016001/ [Suspect]
     Dosage: UNK mg, daily
     Route: 048
     Dates: start: 20110618, end: 20110824
  18. PURSENNID [Concomitant]
     Indication: CONSTIPATION
     Dosage: 24 mg, prn
     Dates: start: 20101103
  19. MAGNESIUM OXIDE [Concomitant]
     Indication: CONSTIPATION
     Dosage: 0.5 g, tid
     Route: 048
     Dates: start: 20101103
  20. TELEMINSOFT [Concomitant]
     Indication: CONSTIPATION
     Dosage: 4 mg, prn
     Route: 054
     Dates: start: 20101109
  21. TAKEPRON [Concomitant]
     Indication: GASTRITIS
     Dosage: 15 mg, daily
     Route: 048
     Dates: start: 20101112
  22. HIRUDOID                           /00723701/ [Concomitant]
     Indication: PALMAR-PLANTAR ERYTHRODYSAESTHESIA SYNDROME
     Dosage: optimal dose, 3 or 4 times daily
     Dates: start: 20101118
  23. HIRUDOID                           /00723701/ [Concomitant]
     Indication: PROPHYLAXIS
  24. LAC B [Concomitant]
     Indication: DIARRHOEA
     Dosage: 2 g, tid
     Route: 048
     Dates: start: 20110326
  25. GASMOTIN [Concomitant]
     Indication: DECREASED APPETITE
     Dosage: 5 mg, tid
     Dates: start: 20110401
  26. CALONAL [Concomitant]
     Indication: PYREXIA
     Dosage: 2 g, daily
     Route: 048
     Dates: start: 20110608, end: 20110916
  27. MOBIC [Concomitant]
     Indication: INTERVERTEBRAL DISC PROTRUSION
     Dosage: 10 mg, daily
     Route: 048
     Dates: start: 20101104, end: 20110916
  28. MUCOSTA [Concomitant]
     Dosage: 100 mg, tid
     Route: 048
     Dates: start: 20110628
  29. OLMETEC [Concomitant]
     Indication: HYPERTENSION
     Dosage: 20 mg, daily
     Route: 048
     Dates: start: 20110831
  30. DAIKENTYUTO [Concomitant]
     Indication: ABDOMINAL DISTENSION
     Dosage: 1 DF, tid
     Route: 048
     Dates: start: 20110729
  31. TERNELIN [Concomitant]
     Indication: PAIN
     Dosage: 1 mg, tid
     Route: 048
     Dates: start: 20110826
  32. PRORENAL [Concomitant]
     Indication: PAIN
     Dosage: 5 mcg, tid
     Route: 048
     Dates: start: 20110826
  33. ZOMETA [Concomitant]
     Indication: RENAL CELL CARCINOMA
     Dosage: 4 mg, daily
     Route: 042
     Dates: start: 20110922, end: 20110922
  34. NORVASC [Concomitant]
     Indication: HYPERTENSION
     Dosage: 10 mg, daily
     Route: 048
     Dates: start: 20110920
  35. VEEN D [Concomitant]
     Indication: FLUID REPLACEMENT
     Dosage: 500 ml, bid
     Route: 042
     Dates: start: 20110927, end: 20110927
  36. AMLODIN [Concomitant]
     Indication: HYPERTENSION
     Dosage: 5 mg, daily
     Route: 048
     Dates: start: 20110711, end: 20110717
  37. INTERFERON ALFA [Concomitant]
     Indication: RENAL CELL CARCINOMA

REACTIONS (5)
  - Extradural abscess [Not Recovered/Not Resolved]
  - Enterocolitis [Recovered/Resolved]
  - Abdominal distension [Recovered/Resolved]
  - Pyrexia [Recovered/Resolved]
  - Vomiting [Recovered/Resolved]
